FAERS Safety Report 9821968 (Version 1)
Quarter: 2014Q1

REPORT INFORMATION
  Report Type: Spontaneous
  Country: CA (occurrence: CA)
  Receive Date: 20140116
  Receipt Date: 20140116
  Transmission Date: 20141002
  Serious: Yes (Hospitalization, Disabling, Other)
  Sender: FDA-Public Use
  Company Number: CA-009507513-1401CAN005529

PATIENT
  Age: 21 Year
  Sex: Female
  Weight: 63.95 kg

DRUGS (1)
  1. NUVARING [Suspect]
     Dosage: RING (SLOW-REALEASE)
     Route: 065

REACTIONS (9)
  - Anxiety [Recovered/Resolved]
  - Abdominal pain [Recovered/Resolved]
  - Depression [Recovered/Resolved]
  - Libido disorder [Recovered/Resolved]
  - Obsessive-compulsive disorder [Recovered/Resolved]
  - Pruritus [Recovered/Resolved]
  - Sexually transmitted disease [Recovered/Resolved]
  - Urinary tract infection [Recovered/Resolved]
  - Vulvovaginal dryness [Recovered/Resolved]
